FAERS Safety Report 25129551 (Version 1)
Quarter: 2025Q1

REPORT INFORMATION
  Report Type: Spontaneous
  Country: US (occurrence: US)
  Receive Date: 20250327
  Receipt Date: 20250327
  Transmission Date: 20250409
  Serious: Yes (Life-Threatening, Other)
  Sender: PFIZER
  Company Number: US-PFIZER INC-PV202500035874

PATIENT
  Age: 52 Year
  Sex: Male

DRUGS (4)
  1. FENTANYL CITRATE [Suspect]
     Active Substance: FENTANYL CITRATE
  2. PROPOFOL [Concomitant]
     Active Substance: PROPOFOL
  3. PROPOFOL [Concomitant]
     Active Substance: PROPOFOL
     Route: 042
  4. CISATRACURIUM [Concomitant]
     Active Substance: CISATRACURIUM

REACTIONS (1)
  - Stupor [Recovered/Resolved]
